FAERS Safety Report 25821327 (Version 2)
Quarter: 2025Q3

REPORT INFORMATION
  Report Type: Spontaneous
  Country: CN (occurrence: CN)
  Receive Date: 20250919
  Receipt Date: 20250926
  Transmission Date: 20251021
  Serious: Yes (Other)
  Sender: SANDOZ
  Company Number: CN-002147023-NVSC2025CN144600

PATIENT
  Age: 59 Year
  Sex: Male

DRUGS (1)
  1. TOBREX [Suspect]
     Active Substance: TOBRAMYCIN
     Indication: Conjunctivitis
     Route: 047
     Dates: start: 20250906, end: 20250909

REACTIONS (4)
  - Nephrogenic anaemia [Unknown]
  - Eyelids pruritus [Recovering/Resolving]
  - Eye pruritus [Unknown]
  - Ocular discomfort [Recovering/Resolving]

NARRATIVE: CASE EVENT DATE: 20250909
